FAERS Safety Report 25310702 (Version 1)
Quarter: 2025Q2

REPORT INFORMATION
  Report Type: Spontaneous
  Country: AT (occurrence: AT)
  Receive Date: 20250514
  Receipt Date: 20250514
  Transmission Date: 20250716
  Serious: Yes (Other)
  Sender: CELLTRION
  Company Number: AT-SANDOZ-SDZ2024AT091720

PATIENT

DRUGS (4)
  1. TRASTUZUMAB [Suspect]
     Active Substance: TRASTUZUMAB
     Indication: Adjuvant therapy
     Route: 065
  2. DOCETAXEL [Suspect]
     Active Substance: DOCETAXEL
     Indication: Adjuvant therapy
     Route: 065
  3. CAPECITABINE [Suspect]
     Active Substance: CAPECITABINE
     Indication: Adjuvant therapy
     Route: 065
     Dates: start: 202405
  4. PERTUZUMAB [Suspect]
     Active Substance: PERTUZUMAB
     Indication: Adjuvant therapy
     Route: 065

REACTIONS (3)
  - Lymphangiopathy [Unknown]
  - Lymphadenopathy [Unknown]
  - Erythema [Unknown]
